FAERS Safety Report 6189220-6 (Version None)
Quarter: 2009Q2

REPORT INFORMATION
  Report Type: 
  Country: None (occurrence: None)
  Receive Date: 20090512
  Receipt Date: 20090427
  Transmission Date: 20091009
  Serious: Yes (Hospitalization, Disabling)
  Sender: FDA-Public Use
  Company Number: IDA-00203

PATIENT
  Age: 56 Year
  Sex: Female

DRUGS (2)
  1. SEROQUEL [Suspect]
     Dosage: 300 MG DAILY, ORAL
     Route: 048
     Dates: start: 20070101
  2. INDERAL [Suspect]
     Indication: HYPERTENSION
     Dosage: 40 MG BID ORAL
     Route: 048
     Dates: start: 19990101

REACTIONS (4)
  - PSORIATIC ARTHROPATHY [None]
  - SWELLING [None]
  - WALKING AID USER [None]
  - WEIGHT INCREASED [None]
